FAERS Safety Report 7290818-2 (Version None)
Quarter: 2011Q1

REPORT INFORMATION
  Report Type: 
  Country: None (occurrence: None)
  Receive Date: 20110202
  Receipt Date: 20110125
  Transmission Date: 20110831
  Serious: Yes (Life-Threatening, Hospitalization)
  Sender: FDA-Public Use
  Company Number: 2011MA000812

PATIENT
  Age: 53 Year
  Sex: Female

DRUGS (9)
  1. COAPROVEL [Concomitant]
  2. TODOLAC [Concomitant]
  3. SIMVASTATIN [Concomitant]
  4. AMARYL [Concomitant]
  5. NEXIUM [Concomitant]
  6. PINEX [Concomitant]
  7. CATAPRESAN [Concomitant]
  8. PREV MEDS [Concomitant]
  9. METFORMIN HCL [Suspect]
     Indication: TYPE 2 DIABETES MELLITUS
     Dosage: 1000 MG;TID;PO
     Route: 048
     Dates: end: 20110104

REACTIONS (3)
  - ACIDOSIS [None]
  - SEPSIS [None]
  - RENAL TUBULAR NECROSIS [None]
